FAERS Safety Report 5080909-9 (Version None)
Quarter: 2006Q3

REPORT INFORMATION
  Report Type: 
  Country: None (occurrence: None)
  Receive Date: 20060810
  Receipt Date: 20060731
  Transmission Date: 20061208
  Serious: Yes (Hospitalization)
  Sender: FDA-Public Use
  Company Number: 2006039998

PATIENT
  Sex: Female

DRUGS (3)
  1. DEPO-PROVERA [Suspect]
     Indication: CONTRACEPTION
     Dosage: 150 MG (150 MG, FIRST INJECTION/TRIMESTRAL), INTRAMUSCULAR; SEE IMAGE
     Route: 030
     Dates: start: 20060309, end: 20060309
  2. DEPO-PROVERA [Suspect]
     Indication: CONTRACEPTION
     Dosage: 150 MG (150 MG, FIRST INJECTION/TRIMESTRAL), INTRAMUSCULAR; SEE IMAGE
     Route: 030
     Dates: start: 20060601, end: 20060601
  3. DIANE (CYPROTERONE ACETATE, ETHINYLESTRADIOL) [Concomitant]

REACTIONS (3)
  - AMENORRHOEA [None]
  - INAPPROPRIATE SCHEDULE OF DRUG ADMINISTRATION [None]
  - NEUROMA [None]
